FAERS Safety Report 6964771-2 (Version None)
Quarter: 2010Q3

REPORT INFORMATION
  Report Type: 
  Country: None (occurrence: None)
  Receive Date: 20100903
  Receipt Date: 20100802
  Transmission Date: 20110219
  Serious: No
  Sender: FDA-Public Use
  Company Number: US-PFIZER INC-2010097548

PATIENT
  Sex: Female
  Weight: 56.236 kg

DRUGS (1)
  1. CLEOCIN [Suspect]
     Indication: VAGINITIS BACTERIAL
     Dosage: 100 MG, DAILY
     Route: 067
     Dates: start: 20100730, end: 20100801

REACTIONS (6)
  - BURNING SENSATION [None]
  - CONDITION AGGRAVATED [None]
  - PAIN [None]
  - VULVOVAGINAL ERYTHEMA [None]
  - VULVOVAGINAL PAIN [None]
  - VULVOVAGINAL PRURITUS [None]
